FAERS Safety Report 12858747 (Version 1)
Quarter: 2016Q4

REPORT INFORMATION
  Report Type: Spontaneous
  Country: US (occurrence: US)
  Receive Date: 20161018
  Receipt Date: 20161018
  Transmission Date: 20170207
  Serious: No
  Sender: FDA-Public Use
  Company Number: US-PERRIGO-16US001836

PATIENT
  Sex: Female
  Weight: 71.2 kg

DRUGS (3)
  1. HALOPERIDOL. [Concomitant]
     Active Substance: HALOPERIDOL
     Indication: BIPOLAR DISORDER
     Dosage: UNK
     Route: 065
     Dates: start: 2014, end: 2015
  2. PERPHENAZINE. [Concomitant]
     Active Substance: PERPHENAZINE
     Indication: BIPOLAR DISORDER
     Dosage: UNK
     Route: 065
     Dates: start: 2015, end: 2015
  3. NICOTINE POLACRILEX [Suspect]
     Active Substance: NICOTINE
     Indication: SMOKING CESSATION THERAPY
     Dosage: 2 MG, 5 TIMES
     Route: 002
     Dates: start: 2015, end: 2015

REACTIONS (1)
  - Dyspepsia [Recovered/Resolved]

NARRATIVE: CASE EVENT DATE: 2015
